FAERS Safety Report 17723227 (Version 1)
Quarter: 2020Q2

REPORT INFORMATION
  Report Type: Spontaneous
  Country: US (occurrence: US)
  Receive Date: 20200429
  Receipt Date: 20200429
  Transmission Date: 20200714
  Serious: Yes (Hospitalization)
  Sender: FDA-Public Use
  Company Number: US-TEVA-2020-US-1227996

PATIENT
  Age: 70 Year
  Sex: Male

DRUGS (1)
  1. CLOPIDOGREL [Suspect]
     Active Substance: CLOPIDOGREL BISULFATE
     Indication: THROMBOSIS PROPHYLAXIS
     Dosage: 75 MILLIGRAM DAILY; POST-SURGERY, HE RECEIVED FOUR DOSES
     Route: 048

REACTIONS (3)
  - Accidental exposure to product [Recovering/Resolving]
  - Spinal cord compression [Recovering/Resolving]
  - Spinal subarachnoid haemorrhage [Recovering/Resolving]
